FAERS Safety Report 9942899 (Version 1)
Quarter: 2014Q1

REPORT INFORMATION
  Report Type: Report from Study
  Country: NL (occurrence: NL)
  Receive Date: 20140303
  Receipt Date: 20140303
  Transmission Date: 20141002
  Serious: Yes (Death)
  Sender: FDA-Public Use
  Company Number: NL-BAXTER-2014BAX010974

PATIENT
  Sex: 0

DRUGS (5)
  1. ENDOXAN I.V., POEDER VOOR OPLOSSING VOOR INJECTIE 200, 500, 1000 MG [Suspect]
     Indication: SMALL CELL LUNG CANCER
     Route: 065
  2. DOXORUBICIN [Suspect]
     Indication: SMALL CELL LUNG CANCER
     Route: 065
  3. ETOPOSIDE [Suspect]
     Indication: SMALL CELL LUNG CANCER
     Route: 065
  4. CISPLATIN [Suspect]
     Indication: SMALL CELL LUNG CANCER
     Route: 065
  5. ETOPOSIDE [Suspect]
     Indication: SMALL CELL LUNG CANCER
     Route: 065

REACTIONS (1)
  - Death [Fatal]
